FAERS Safety Report 16498785 (Version 1)
Quarter: 2019Q2

REPORT INFORMATION
  Report Type: Report from Study
  Country: DE (occurrence: DE)
  Receive Date: 20190630
  Receipt Date: 20190630
  Transmission Date: 20190711
  Serious: Yes (Hospitalization)
  Sender: FDA-Public Use
  Company Number: DE-BIOGEN-2019BI00756080

PATIENT
  Age: 48 Year
  Sex: Female
  Weight: 74 kg

DRUGS (4)
  1. PLEGRIDY [Suspect]
     Active Substance: PEGINTERFERON BETA-1A
     Route: 058
  2. PLEGRIDY [Suspect]
     Active Substance: PEGINTERFERON BETA-1A
     Indication: MULTIPLE SCLEROSIS
     Route: 058
     Dates: start: 20180705
  3. OPIPRAMOL [Concomitant]
     Active Substance: OPIPRAMOL
     Indication: RESTLESS LEGS SYNDROME
     Route: 065
     Dates: start: 1999
  4. PAROXETIN [Concomitant]
     Active Substance: PAROXETINE HYDROCHLORIDE
     Indication: DEPRESSION
     Route: 065
     Dates: start: 201902, end: 20190607

REACTIONS (4)
  - Sleep disorder [Not Recovered/Not Resolved]
  - Menorrhagia [Recovered/Resolved]
  - Syncope [Recovered/Resolved]
  - Dizziness [Not Recovered/Not Resolved]

NARRATIVE: CASE EVENT DATE: 201905
